FAERS Safety Report 7545317-7 (Version None)
Quarter: 2011Q2

REPORT INFORMATION
  Report Type: 
  Country: None (occurrence: None)
  Receive Date: 20110607
  Receipt Date: 20110523
  Transmission Date: 20111010
  Serious: Yes (Death, Life-Threatening, Hospitalization)
  Sender: FDA-Public Use
  Company Number: 2011MA006349

PATIENT
  Age: 64 Year
  Sex: Male

DRUGS (1)
  1. TRIAMCINOLONE ACETONIDE [Suspect]
     Indication: NECK PAIN
     Dosage: 80 MG ; IV
     Route: 042

REACTIONS (8)
  - LOSS OF CONSCIOUSNESS [None]
  - SOFT TISSUE HAEMORRHAGE [None]
  - THALAMIC INFARCTION [None]
  - CEREBRAL HAEMORRHAGE [None]
  - CEREBRAL INFARCTION [None]
  - BLOOD PRESSURE INCREASED [None]
  - APNOEA [None]
  - BRADYCARDIA [None]
